FAERS Safety Report 22087148 (Version 1)
Quarter: 2023Q1

REPORT INFORMATION
  Report Type: Other
  Country: DE (occurrence: DE)
  Receive Date: 20230313
  Receipt Date: 20230313
  Transmission Date: 20230418
  Serious: Yes (Congenital Anomaly, Other)
  Sender: FDA-Public Use
  Company Number: DE-MACLEODS PHARMACEUTICALS US LTD-MAC2023040126

PATIENT

DRUGS (4)
  1. PANTOPRAZOLE SODIUM [Suspect]
     Active Substance: PANTOPRAZOLE SODIUM
     Indication: Product used for unknown indication
     Dosage: 40 MILLIGRAM, QD, 1 {TRIMESTER}, 0. - 39.2. GESTATIONAL WEEK
     Route: 064
     Dates: start: 20210909, end: 20220611
  2. VENLAFAXINE [Suspect]
     Active Substance: VENLAFAXINE HYDROCHLORIDE
     Indication: Product used for unknown indication
     Dosage: 112.5 MILLIGRAM, QD, 1 {TRIMESTER},0. - 31.1. GESTATIONAL WEEK
     Route: 064
  3. TOZINAMERAN [Suspect]
     Active Substance: TOZINAMERAN
     Indication: Product used for unknown indication
     Dosage: UNK UNK, SINGLE 2 {TRIMESTER}, 17.1.-17.1. GESTATIONAL WEEK
     Route: 064
     Dates: start: 20220107, end: 20220107
  4. AMITRIPTYLINE [Suspect]
     Active Substance: AMITRIPTYLINE
     Indication: Product used for unknown indication
     Dosage: 50 MILLIGRAM, QD (1ST TRIMESTER, 0. - 31.1. GESTATIONAL WEEK)
     Route: 064

REACTIONS (3)
  - Atrial septal defect [Unknown]
  - Pulmonary artery stenosis [Unknown]
  - Foetal exposure during pregnancy [Unknown]
